FAERS Safety Report 6371230-7 (Version None)
Quarter: 2009Q3

REPORT INFORMATION
  Report Type: 
  Country: None (occurrence: None)
  Receive Date: 20090918
  Receipt Date: 20090904
  Transmission Date: 20100115
  Serious: Yes (Hospitalization)
  Sender: FDA-Public Use
  Company Number: 8049827

PATIENT
  Age: 32 Year
  Sex: Male
  Weight: 70 kg

DRUGS (7)
  1. LEVETIRACETAM [Suspect]
     Indication: CONVULSION
     Dates: start: 20090601
  2. LEVETIRACETAM [Suspect]
     Indication: CONVULSION
     Dosage: 500 MG 2/D PO
     Route: 048
  3. LACOSAMIDE [Suspect]
     Indication: CONVULSION
     Dosage: 100 MG/D IV
     Route: 042
     Dates: start: 20090620, end: 20090622
  4. AMPICILLIN AND SULBACTAM [Concomitant]
  5. VALPROATE SODIUM [Concomitant]
  6. LORAZEPAM [Concomitant]
  7. TOPIRAMATE [Concomitant]

REACTIONS (5)
  - BRADYCARDIA [None]
  - COMPLEX PARTIAL SEIZURES [None]
  - GRAND MAL CONVULSION [None]
  - HALLUCINATION, AUDITORY [None]
  - PSYCHOTIC DISORDER [None]
